FAERS Safety Report 17562034 (Version 1)
Quarter: 2020Q1

REPORT INFORMATION
  Report Type: Report from Study
  Country: ES (occurrence: ES)
  Receive Date: 20200319
  Receipt Date: 20200319
  Transmission Date: 20200409
  Serious: Yes (Death, Hospitalization)
  Sender: FDA-Public Use
  Company Number: ES-JNJFOC-20200313010

PATIENT
  Age: 80 Year
  Sex: Male

DRUGS (4)
  1. HIDROFEROL [Concomitant]
     Active Substance: CALCIFEDIOL
     Indication: CROHN^S DISEASE
     Route: 048
     Dates: start: 20180515, end: 20190919
  2. DARBEPOETINA ALFA [Concomitant]
     Indication: CHRONIC KIDNEY DISEASE
     Route: 058
     Dates: start: 2018, end: 20190919
  3. STELARA [Suspect]
     Active Substance: USTEKINUMAB
     Indication: CROHN^S DISEASE
     Route: 042
     Dates: start: 20190425, end: 20190912
  4. DUODART [Concomitant]
     Active Substance: DUTASTERIDE\TAMSULOSIN
     Indication: BENIGN PROSTATIC HYPERPLASIA
     Route: 048
     Dates: start: 20180515, end: 20190919

REACTIONS (1)
  - Visceral leishmaniasis [Fatal]

NARRATIVE: CASE EVENT DATE: 20190914
